FAERS Safety Report 15849035 (Version 2)
Quarter: 2019Q1

REPORT INFORMATION
  Report Type: Spontaneous
  Country: JP (occurrence: JP)
  Receive Date: 20190121
  Receipt Date: 20190129
  Transmission Date: 20190417
  Serious: Yes (Death)
  Sender: FDA-Public Use
  Company Number: JP-BIOCRYST PHARMACEUTICALS, INC.-2019BCR00007

PATIENT
  Age: 83 Year
  Sex: Female

DRUGS (1)
  1. RAPIACTA [Suspect]
     Active Substance: PERAMIVIR
     Indication: INFLUENZA
     Dosage: 100 MG, 1X/DAY
     Route: 042
     Dates: start: 20190107, end: 20190107

REACTIONS (2)
  - Pulmonary oedema [Fatal]
  - Pneumonia [Fatal]

NARRATIVE: CASE EVENT DATE: 20190107
